FAERS Safety Report 10216908 (Version 1)
Quarter: 2014Q2

REPORT INFORMATION
  Report Type: Report from Study
  Country: CA (occurrence: CA)
  Receive Date: 20140604
  Receipt Date: 20140604
  Transmission Date: 20141212
  Serious: Yes (Other)
  Sender: FDA-Public Use
  Company Number: CA-BRISTOL-MYERS SQUIBB COMPANY-20907606

PATIENT
  Age: 70 Year
  Sex: Female

DRUGS (5)
  1. ABATACEPT SUBQ INJECTION 125MG/ML [Suspect]
     Indication: RHEUMATOID ARTHRITIS
     Dosage: INTERRUPTED 3WEEKS.RESUMED FOR 5 INJECTIONS
     Route: 058
     Dates: start: 20140317
  2. IBUPROFEN [Concomitant]
  3. PREDNISONE [Concomitant]
  4. SYMBICORT [Concomitant]
  5. SPIRIVA [Concomitant]

REACTIONS (2)
  - Surgery [Unknown]
  - Localised infection [Unknown]
